FAERS Safety Report 5006626-9 (Version None)
Quarter: 2006Q2

REPORT INFORMATION
  Report Type: 
  Country: None (occurrence: None)
  Receive Date: 20060516
  Receipt Date: 20060510
  Transmission Date: 20061013
  Serious: Yes (Other)
  Sender: FDA-Public Use
  Company Number: HQWYE153003MAY06

PATIENT
  Age: 57 Year
  Sex: Male

DRUGS (1)
  1. EFFEXOR [Suspect]
     Dates: start: 20030101, end: 20040101

REACTIONS (4)
  - DERMATITIS PSORIASIFORM [None]
  - HYPERKERATOSIS [None]
  - HYPERKERATOSIS PALMARIS AND PLANTARIS [None]
  - PARONYCHIA [None]
